FAERS Safety Report 16688295 (Version 1)
Quarter: 2019Q3

REPORT INFORMATION
  Report Type: Spontaneous
  Country: US (occurrence: US)
  Receive Date: 20190809
  Receipt Date: 20190809
  Transmission Date: 20191004
  Serious: Yes (Other)
  Sender: FDA-Public Use
  Company Number: US-PFIZER INC-2019339208

PATIENT
  Sex: Male
  Weight: 86 kg

DRUGS (1)
  1. VIAGRA [Suspect]
     Active Substance: SILDENAFIL CITRATE
     Indication: ERECTILE DYSFUNCTION
     Dosage: 100 MG, AS NEEDED (TAKEN BY MOUTH 1 HOUR PRIOR TO SEXUAL ACTIVITY AS NEEDED)
     Route: 048

REACTIONS (1)
  - Follicle centre lymphoma, follicular grade I, II, III [Recovered/Resolved]
